FAERS Safety Report 6447535-8 (Version None)
Quarter: 2009Q4

REPORT INFORMATION
  Report Type: 
  Country: None (occurrence: None)
  Receive Date: 20091119
  Receipt Date: 20091116
  Transmission Date: 20100525
  Serious: Yes (Hospitalization)
  Sender: FDA-Public Use
  Company Number: US-GILEAD-2009-0025456

PATIENT
  Sex: Female

DRUGS (11)
  1. LETAIRIS [Suspect]
     Indication: PULMONARY ARTERIAL HYPERTENSION
     Route: 048
     Dates: start: 20090429
  2. DILTIAZEM [Concomitant]
  3. METOPROLOL [Concomitant]
  4. ENALAPRIL MALEATE [Concomitant]
  5. DIGOXIN [Concomitant]
  6. AMLODIPINE [Concomitant]
  7. HYDROCHLOROTHIAZIDE [Concomitant]
  8. WARFARIN SODIUM [Concomitant]
  9. LUMIGAN [Concomitant]
  10. FISH OIL [Concomitant]
  11. M.V.I. [Concomitant]

REACTIONS (2)
  - DYSPNOEA [None]
  - PNEUMONIA [None]
